FAERS Safety Report 4484523-5 (Version None)
Quarter: 2004Q3

REPORT INFORMATION
  Report Type: 
  Country: None (occurrence: None)
  Receive Date: 20040921
  Receipt Date: 20031226
  Transmission Date: 20050211
  Serious: Yes (Hospitalization)
  Sender: FDA-Public Use
  Company Number: 163-20785-03120547(0)

PATIENT
  Age: 55 Year
  Sex: Male

DRUGS (7)
  1. THALOMID [Suspect]
     Indication: CROHN'S DISEASE
     Dosage: 100 MG, DAILY, ORAL
     Route: 048
     Dates: start: 20030701
  2. IMURAN [Concomitant]
  3. NEXIUM [Concomitant]
  4. DOXEPIN (DOXEPIN) [Concomitant]
  5. BENTYL [Concomitant]
  6. IMMODIUM (LOPERAMIDE HYDROCHLORIDE) [Concomitant]
  7. COLESTID [Concomitant]

REACTIONS (3)
  - OEDEMA PERIPHERAL [None]
  - PAIN IN EXTREMITY [None]
  - THROMBOPHLEBITIS [None]
